FAERS Safety Report 9452304 (Version 1)
Quarter: 2013Q3

REPORT INFORMATION
  Report Type: Spontaneous
  Country: US (occurrence: None)
  Receive Date: 20130808
  Receipt Date: 20130808
  Transmission Date: 20140515
  Serious: No
  Sender: FDA-Public Use
  Company Number: None

PATIENT
  Age: 68 Year
  Sex: Male

DRUGS (2)
  1. METOPROLOL TARTRATE [Suspect]
     Indication: HYPERTENSION
     Route: 048
     Dates: start: 20130713, end: 20130807
  2. METOPROLOL TARTRATE [Suspect]
     Indication: ANEURYSM
     Route: 048
     Dates: start: 20130713, end: 20130807

REACTIONS (3)
  - Somnolence [None]
  - Syncope [None]
  - Product substitution issue [None]
